FAERS Safety Report 20502782 (Version 5)
Quarter: 2022Q2

REPORT INFORMATION
  Report Type: Report from Study
  Country: US (occurrence: US)
  Receive Date: 20220222
  Receipt Date: 20220531
  Transmission Date: 20220721
  Serious: Yes (Hospitalization)
  Sender: FDA-Public Use
  Company Number: US-PFIZER INC-202200251261

PATIENT
  Age: 52 Year
  Sex: Female
  Weight: 80.7 kg

DRUGS (8)
  1. ABROCITINIB [Suspect]
     Active Substance: ABROCITINIB
     Indication: Dermatitis atopic
     Dosage: 200 MG, 1X/DAY
     Route: 048
     Dates: start: 20210316, end: 20220221
  2. FIORICET [Suspect]
     Active Substance: ACETAMINOPHEN\BUTALBITAL\CAFFEINE
     Indication: Migraine
     Dosage: 1 TAB, AS NEEDED
     Route: 048
     Dates: start: 1992, end: 20220115
  3. PUMPKIN SEED OIL [CUCURBITA PEPO OIL] [Concomitant]
     Indication: Hypercholesterolaemia
     Dosage: PILL
     Route: 048
     Dates: start: 20210801
  4. SUMATRIPTAN [Concomitant]
     Active Substance: SUMATRIPTAN
     Indication: Migraine
     Dosage: PILL
     Route: 048
     Dates: start: 2017
  5. ZOLOFT [Concomitant]
     Active Substance: SERTRALINE HYDROCHLORIDE
     Indication: Anxiety
     Dosage: PILL
     Route: 048
     Dates: start: 202101
  6. NORVASC [Concomitant]
     Active Substance: AMLODIPINE BESYLATE
     Indication: Hypertension
     Dosage: PILL
     Route: 048
     Dates: start: 202101
  7. PREMPRO [Concomitant]
     Active Substance: ESTROGENS, CONJUGATED\MEDROXYPROGESTERONE ACETATE
     Indication: Postmenopause
     Dosage: PILL
     Route: 048
     Dates: start: 20201201
  8. ULTRAM [Concomitant]
     Active Substance: TRAMADOL HYDROCHLORIDE
     Indication: Abdominal pain
     Dosage: PILL
     Route: 048
     Dates: start: 20220123, end: 20220129

REACTIONS (1)
  - Duodenal ulcer [Not Recovered/Not Resolved]

NARRATIVE: CASE EVENT DATE: 20220130
